FAERS Safety Report 24577688 (Version 1)
Quarter: 2024Q4

REPORT INFORMATION
  Report Type: Spontaneous
  Country: US (occurrence: US)
  Receive Date: 20241104
  Receipt Date: 20241104
  Transmission Date: 20250115
  Serious: Yes (Hospitalization, Other)
  Sender: RECKITT BENCKISER
  Company Number: US-INDIVIOR US-INDV-157175-2024

PATIENT

DRUGS (2)
  1. BUPRENORPHINE\NALOXONE [Suspect]
     Active Substance: BUPRENORPHINE\NALOXONE
     Indication: Drug use disorder
     Dosage: 8 MILLIGRAM, BID
     Route: 060
  2. BUPRENORPHINE\NALOXONE [Suspect]
     Active Substance: BUPRENORPHINE\NALOXONE
     Indication: Cancer pain

REACTIONS (8)
  - Neurotoxicity [Recovered/Resolved]
  - Metastases to spine [Unknown]
  - Spinal compression fracture [Unknown]
  - Spinal cord compression [Unknown]
  - Hallucination [Recovered/Resolved]
  - Arthralgia [Unknown]
  - Anxiety [Unknown]
  - Inappropriate schedule of product administration [Unknown]
